FAERS Safety Report 6437129-2 (Version None)
Quarter: 2009Q4

REPORT INFORMATION
  Report Type: 
  Country: None (occurrence: None)
  Receive Date: 20091112
  Receipt Date: 20091104
  Transmission Date: 20100525
  Serious: Yes (Hospitalization)
  Sender: FDA-Public Use
  Company Number: PL-BAXTER-2009BH016500

PATIENT
  Age: 14 Year
  Sex: Male
  Weight: 58 kg

DRUGS (6)
  1. ADVATE [Suspect]
     Indication: FACTOR VIII DEFICIENCY
     Route: 065
     Dates: start: 20091022, end: 20091022
  2. NOOTROPIL [Concomitant]
     Indication: SOMNAMBULISM
     Dates: start: 20080110
  3. VITAMIN B COMPLEX CAP [Concomitant]
     Indication: SOMNAMBULISM
     Dates: start: 20080110
  4. OMEGA-3 MARINE TRIGLYCERIDES [Concomitant]
     Indication: SOMNAMBULISM
     Dates: start: 20080110
  5. ATARAX [Concomitant]
     Indication: SOMNAMBULISM
     Route: 048
     Dates: start: 20080110
  6. SEBIDIN [Concomitant]
     Indication: PHARYNGITIS
     Route: 048
     Dates: start: 20081004, end: 20081008

REACTIONS (1)
  - SOMNAMBULISM [None]
